FAERS Safety Report 8872312 (Version 1)
Quarter: 2012Q4

REPORT INFORMATION
  Report Type: 
  Country: US (occurrence: US)
  Receive Date: 20121026
  Receipt Date: 20121026
  Transmission Date: 20130627
  Serious: No
  Sender: FDA-Public Use
  Company Number: US-AMGEN-USASP2012049280

PATIENT
  Age: 58 Year
  Sex: Female
  Weight: 53.52 kg

DRUGS (6)
  1. ENBREL [Suspect]
     Indication: PRODUCT USED FOR UNKNOWN INDICATION
     Dosage: 50 mg, qwk
  2. CALCIUM [Concomitant]
     Dosage: 500 UNK, UNK
  3. FOSAMAX [Concomitant]
     Dosage: 10 mg, UNK
  4. VITAMIN D /00107901/ [Concomitant]
     Dosage: 1000 unit, UNK
  5. AMLODIPINE [Concomitant]
     Dosage: 2.5 mg, UNK
  6. METHIMAZOLE [Concomitant]
     Dosage: UNK

REACTIONS (1)
  - Palpitations [Unknown]
